FAERS Safety Report 9384644 (Version 1)
Quarter: 2013Q3

REPORT INFORMATION
  Report Type: Spontaneous
  Country: IT (occurrence: None)
  Receive Date: 20130701
  Receipt Date: 20130701
  Transmission Date: 20140515
  Serious: Yes (Other)
  Sender: FDA-Public Use
  Company Number: AUR-APL-2013-05377

PATIENT
  Age: 59 Year
  Sex: Male

DRUGS (3)
  1. AMOXICILLIN (AMOXICILLIN) [Suspect]
     Indication: TOOTH ABSCESS
     Route: 048
     Dates: start: 20130421, end: 20130421
  2. METRONIDAZOLE (METRONIDAZOLE) [Suspect]
     Indication: TOOTH ABSCESS
     Route: 048
     Dates: start: 20130421, end: 20130421
  3. KETOPROFENE [Suspect]
     Indication: TOOTH ABSCESS
     Dates: start: 20130421, end: 20130421

REACTIONS (2)
  - Angioedema [None]
  - Dysphagia [None]
